FAERS Safety Report 13478741 (Version 1)
Quarter: 2017Q2

REPORT INFORMATION
  Report Type: Report from Study
  Country: FR (occurrence: FR)
  Receive Date: 20170425
  Receipt Date: 20170425
  Transmission Date: 20170830
  Serious: Yes (Other)
  Sender: FDA-Public Use
  Company Number: FR-ROCHE-1919508

PATIENT
  Sex: Male

DRUGS (10)
  1. IFOSFAMIDE. [Concomitant]
     Active Substance: IFOSFAMIDE
     Indication: RHABDOMYOSARCOMA
     Route: 065
     Dates: start: 20100912
  2. DEXRAZOXANE. [Concomitant]
     Active Substance: DEXRAZOXANE
     Indication: RHABDOMYOSARCOMA
     Route: 065
     Dates: start: 20100912
  3. DACTINOMYCIN [Concomitant]
     Active Substance: DACTINOMYCIN
     Indication: RHABDOMYOSARCOMA
     Route: 065
     Dates: start: 20100912
  4. RIVOTRIL [Concomitant]
     Active Substance: CLONAZEPAM
     Route: 065
  5. LAROXYL [Concomitant]
     Active Substance: AMITRIPTYLINE
     Route: 065
  6. NAVELBINE [Suspect]
     Active Substance: VINORELBINE TARTRATE
     Indication: RHABDOMYOSARCOMA
     Dosage: MAINTENANCE CHEMOTHERAPY
     Route: 065
     Dates: start: 20110610, end: 20120509
  7. DOXORUBICIN [Concomitant]
     Active Substance: DOXORUBICIN
     Indication: RHABDOMYOSARCOMA
     Route: 065
     Dates: start: 20100912
  8. VINCRISTINE TEVA [Suspect]
     Active Substance: VINCRISTINE
     Indication: RHABDOMYOSARCOMA
     Dosage: MAINTENANCE CHEMOTHERAPY
     Route: 042
     Dates: start: 20100912, end: 20101229
  9. BEVACIZUMAB [Suspect]
     Active Substance: BEVACIZUMAB
     Indication: RHABDOMYOSARCOMA
     Dosage: 7.5 MG/KG IV ON DAY 1 OF 9 X 3-WEEK CYCLES, FOLLOWED BY 5 MG/KG IV ON DAYS 1 AND 15 OF EACH 4-WEEK C
     Route: 042
     Dates: start: 201009, end: 20120920
  10. ENDOXAN [Concomitant]
     Active Substance: CYCLOPHOSPHAMIDE
     Indication: RHABDOMYOSARCOMA
     Route: 048
     Dates: start: 20110610, end: 20120509

REACTIONS (1)
  - Axonal neuropathy [Unknown]

NARRATIVE: CASE EVENT DATE: 2011
